FAERS Safety Report 8516954-8 (Version None)
Quarter: 2012Q3

REPORT INFORMATION
  Report Type: 
  Country: None (occurrence: None)
  Receive Date: 20120718
  Receipt Date: 20120709
  Transmission Date: 20120928
  Serious: Yes (Other)
  Sender: FDA-Public Use
  Company Number: NL-ELI_LILLY_AND_COMPANY-NL201207002894

PATIENT
  Sex: Female

DRUGS (10)
  1. PERINDOPRIL ERBUMINE [Concomitant]
  2. SALMETEROL/FLUTICASONPROPIONAAT [Concomitant]
  3. TEMAZEPAM [Concomitant]
  4. PANTOPRAZOLE [Concomitant]
  5. CARBASALAATCALCIUM [Concomitant]
  6. LEVETIRACETAM [Concomitant]
  7. FORTEO [Suspect]
     Indication: OSTEOPOROSIS
     Dosage: 20 UG, QD
     Dates: start: 20101213
  8. AMYLASE/LIPASE/PROTEASE [Concomitant]
  9. SIMVASTATIN [Concomitant]
  10. VALPROIC ACID [Concomitant]

REACTIONS (1)
  - LUNG NEOPLASM MALIGNANT [None]
